FAERS Safety Report 7042189-4 (Version None)
Quarter: 2010Q4

REPORT INFORMATION
  Report Type: 
  Country: None (occurrence: None)
  Receive Date: 20101013
  Receipt Date: 20090710
  Transmission Date: 20110411
  Serious: No
  Sender: FDA-Public Use
  Company Number: US-ASTRAZENECA-2009UW13701

PATIENT
  Sex: Female
  Weight: 77.1 kg

DRUGS (3)
  1. SYMBICORT [Suspect]
     Dosage: 1 PUFF
     Route: 055
     Dates: start: 20090501
  2. SYMBICORT [Suspect]
     Dosage: 1 PUFF
     Route: 055
     Dates: start: 20090501
  3. ASPIRIN [Concomitant]

REACTIONS (1)
  - DYSPNOEA [None]
